FAERS Safety Report 5665005-1 (Version None)
Quarter: 2008Q1

REPORT INFORMATION
  Report Type: 
  Country: None (occurrence: None)
  Receive Date: 20080314
  Receipt Date: 20080303
  Transmission Date: 20080703
  Serious: Yes (Hospitalization)
  Sender: FDA-Public Use
  Company Number: GB-PFIZER INC-2008020393

PATIENT
  Age: 72 Year
  Sex: Female

DRUGS (7)
  1. SPIRONOLACTONE [Suspect]
     Indication: HYPERTENSION
  2. DOXAZOSIN MESYLATE [Suspect]
  3. ATENOLOL [Suspect]
  4. LISINOPRIL [Suspect]
     Indication: HYPERTENSION
  5. ANTIHYPERTENSIVES [Suspect]
  6. BENDROFLUMETHIAZIDE [Concomitant]
     Route: 048
  7. FELODIPINE [Concomitant]
     Route: 048

REACTIONS (6)
  - BLOOD CREATINE INCREASED [None]
  - BRONCHOSPASM [None]
  - EPISTAXIS [None]
  - HYPERKALAEMIA [None]
  - NASAL CONGESTION [None]
  - NAUSEA [None]
